FAERS Safety Report 17853008 (Version 1)
Quarter: 2020Q2

REPORT INFORMATION
  Report Type: Spontaneous
  Country: CN (occurrence: CN)
  Receive Date: 20200602
  Receipt Date: 20200602
  Transmission Date: 20200714
  Serious: Yes (Other)
  Sender: FDA-Public Use
  Company Number: CN-ELI_LILLY_AND_COMPANY-CN202005009120

PATIENT
  Age: 17 Year
  Sex: Male
  Weight: 60 kg

DRUGS (4)
  1. PROZAC [Suspect]
     Active Substance: FLUOXETINE HYDROCHLORIDE
     Indication: PANIC DISORDER
  2. DEPAKINE [VALPROATE SODIUM] [Concomitant]
     Active Substance: VALPROATE SODIUM
     Indication: PANIC DISORDER
  3. PROZAC [Suspect]
     Active Substance: FLUOXETINE HYDROCHLORIDE
     Indication: HYPOMANIA
     Dosage: 20 MG, DAILY
     Route: 048
     Dates: start: 20190802, end: 20200331
  4. DEPAKINE [VALPROATE SODIUM] [Concomitant]
     Active Substance: VALPROATE SODIUM
     Indication: HYPOMANIA
     Dosage: 0.75 G, BID
     Route: 048
     Dates: start: 20190802, end: 20200521

REACTIONS (4)
  - Chest pain [Recovering/Resolving]
  - Discomfort [Recovering/Resolving]
  - Chest discomfort [Recovering/Resolving]
  - Irritability [Recovering/Resolving]

NARRATIVE: CASE EVENT DATE: 20200331
